FAERS Safety Report 6130902-X (Version None)
Quarter: 2009Q1

REPORT INFORMATION
  Report Type: 
  Country: None (occurrence: None)
  Receive Date: 20090325
  Receipt Date: 20090318
  Transmission Date: 20090719
  Serious: Yes (Other)
  Sender: FDA-Public Use
  Company Number: US-BAYER-200911780NA

PATIENT
  Age: 52 Year
  Sex: Female

DRUGS (4)
  1. NEXAVAR [Suspect]
     Indication: HEAD AND NECK CANCER
     Dosage: TOTAL DAILY DOSE: 800 MG  UNIT DOSE: 200 MG
     Route: 048
     Dates: start: 20081231, end: 20090110
  2. NEXAVAR [Suspect]
     Dosage: AS USED: 400/200 MG  UNIT DOSE: 200 MG
     Route: 048
     Dates: start: 20090205, end: 20090208
  3. NEXAVAR [Suspect]
     Dosage: TOTAL DAILY DOSE: 400 MG  UNIT DOSE: 200 MG
     Route: 048
     Dates: start: 20090129, end: 20090205
  4. NEXAVAR [Suspect]
     Dosage: TOTAL DAILY DOSE: 400 MG  UNIT DOSE: 200 MG
     Route: 048
     Dates: start: 20081224, end: 20081231

REACTIONS (7)
  - ABDOMINAL PAIN [None]
  - BURNING SENSATION [None]
  - DYSPEPSIA [None]
  - FAECES DISCOLOURED [None]
  - GASTROINTESTINAL HAEMORRHAGE [None]
  - PAIN IN EXTREMITY [None]
  - PARAESTHESIA [None]
